FAERS Safety Report 13262262 (Version 1)
Quarter: 2017Q1

REPORT INFORMATION
  Report Type: Report from Study
  Country: None (occurrence: US)
  Receive Date: 20170222
  Receipt Date: 20170222
  Transmission Date: 20170428
  Serious: Yes (Hospitalization)
  Sender: FDA-Public Use
  Company Number: US-ABBVIE-16K-163-1809690-00

PATIENT
  Age: 73 Year
  Sex: Female
  Weight: 4.76 kg

DRUGS (19)
  1. METOPROLOL. [Concomitant]
     Active Substance: METOPROLOL
     Indication: HEART RATE IRREGULAR
  2. PROLIA [Concomitant]
     Active Substance: DENOSUMAB
     Indication: PRODUCT USED FOR UNKNOWN INDICATION
  3. FUROSEMIDE. [Concomitant]
     Active Substance: FUROSEMIDE
     Indication: CARDIAC FAILURE
  4. OMEPRAZOL [Concomitant]
     Active Substance: OMEPRAZOLE
     Indication: GASTROOESOPHAGEAL REFLUX DISEASE
  5. HUMIRA [Suspect]
     Active Substance: ADALIMUMAB
     Indication: RHEUMATOID ARTHRITIS
     Route: 058
     Dates: start: 2007, end: 2011
  6. FOLIC ACID. [Concomitant]
     Active Substance: FOLIC ACID
     Indication: PRODUCT USED FOR UNKNOWN INDICATION
  7. ZOLOFT [Concomitant]
     Active Substance: SERTRALINE HYDROCHLORIDE
     Indication: DEPRESSION
  8. PROLIA [Concomitant]
     Active Substance: DENOSUMAB
     Indication: PRODUCT USED FOR UNKNOWN INDICATION
  9. METHOTREXATE. [Concomitant]
     Active Substance: METHOTREXATE
     Indication: RHEUMATOID ARTHRITIS
  10. WARFARIN [Concomitant]
     Active Substance: WARFARIN
     Indication: PROPHYLAXIS
  11. LEVOTHYROXINE. [Concomitant]
     Active Substance: LEVOTHYROXINE
     Indication: PRODUCT USED FOR UNKNOWN INDICATION
  12. WARFARIN [Concomitant]
     Active Substance: WARFARIN
     Indication: DEEP VEIN THROMBOSIS
  13. LEVOTHYROXINE. [Concomitant]
     Active Substance: LEVOTHYROXINE
     Indication: HYPOTHYROIDISM
  14. HEPARIN [Concomitant]
     Active Substance: HEPARIN SODIUM
     Indication: CARDIAC FAILURE
  15. ASPIRIN. [Concomitant]
     Active Substance: ASPIRIN
     Indication: PRODUCT USED FOR UNKNOWN INDICATION
  16. POTASSIUM [Concomitant]
     Active Substance: POTASSIUM
     Indication: CARDIAC FAILURE
  17. VITAMIN D [Concomitant]
     Active Substance: CHOLECALCIFEROL
     Indication: PRODUCT USED FOR UNKNOWN INDICATION
  18. SIMVASTATIN. [Concomitant]
     Active Substance: SIMVASTATIN
     Indication: HYPERLIPIDAEMIA
  19. ADVAIR HFA [Concomitant]
     Active Substance: FLUTICASONE PROPIONATE\SALMETEROL XINAFOATE
     Indication: ASTHMA

REACTIONS (5)
  - Pulmonary embolism [Recovering/Resolving]
  - Hypertrophic cardiomyopathy [Recovering/Resolving]
  - Fatigue [Unknown]
  - Atrial fibrillation [Recovered/Resolved]
  - Rheumatoid arthritis [Unknown]

NARRATIVE: CASE EVENT DATE: 2008
